FAERS Safety Report 5908276-6 (Version None)
Quarter: 2008Q4

REPORT INFORMATION
  Report Type: 
  Country: None (occurrence: None)
  Receive Date: 20081006
  Receipt Date: 20080926
  Transmission Date: 20090506
  Serious: Yes (Hospitalization, Other)
  Sender: FDA-Public Use
  Company Number: CA-JNJFOC-20081000053

PATIENT
  Sex: Female

DRUGS (1)
  1. REMICADE [Suspect]
     Indication: SKIN DISORDER
     Route: 042

REACTIONS (2)
  - ELBOW OPERATION [None]
  - ROAD TRAFFIC ACCIDENT [None]
